FAERS Safety Report 18880306 (Version 1)
Quarter: 2021Q1

REPORT INFORMATION
  Report Type: Report from Study
  Country: CA (occurrence: CA)
  Receive Date: 20210211
  Receipt Date: 20210211
  Transmission Date: 20210420
  Serious: Yes (Death)
  Sender: FDA-Public Use
  Company Number: CA-PFIZER INC-2021130782

PATIENT
  Age: 76 Year
  Sex: Male

DRUGS (17)
  1. BRIMONIDINE [Concomitant]
     Active Substance: BRIMONIDINE TARTRATE
  2. PERINDOPRIL [Concomitant]
     Active Substance: PERINDOPRIL
  3. VENTOLIN [Concomitant]
     Active Substance: ALBUTEROL SULFATE
  4. BEVACIZUMAB. [Suspect]
     Active Substance: BEVACIZUMAB
     Dosage: 540 MG 1 EVERY 2 WEEKS
     Route: 042
  5. ACETAMINOPHEN. [Concomitant]
     Active Substance: ACETAMINOPHEN
     Indication: PREMEDICATION
     Dosage: 650 MG
     Route: 048
  6. LANSOPRAZOLE. [Concomitant]
     Active Substance: LANSOPRAZOLE
  7. LOSEC [Concomitant]
     Active Substance: OMEPRAZOLE
  8. SPIRONOLACTONE. [Concomitant]
     Active Substance: SPIRONOLACTONE
  9. LASIX [Concomitant]
     Active Substance: FUROSEMIDE
  10. TRANEXAMIC ACID. [Concomitant]
     Active Substance: TRANEXAMIC ACID
  11. BEVACIZUMAB. [Suspect]
     Active Substance: BEVACIZUMAB
     Dosage: 550 MG 1 EVERY 2 WEEKS
     Route: 042
  12. DIPHENHYDRAMINE. [Concomitant]
     Active Substance: DIPHENHYDRAMINE
     Indication: PREMEDICATION
     Dosage: 50 MG
     Route: 048
  13. ADVAIR HFA [Concomitant]
     Active Substance: FLUTICASONE PROPIONATE\SALMETEROL XINAFOATE
  14. ERGOCALCIFEROL. [Concomitant]
     Active Substance: ERGOCALCIFEROL
  15. AZITHROMYCIN ANHYDROUS. [Concomitant]
     Active Substance: AZITHROMYCIN ANHYDROUS
  16. FOLIC ACID. [Concomitant]
     Active Substance: FOLIC ACID
  17. METHOTREXATE. [Concomitant]
     Active Substance: METHOTREXATE
     Route: 037

REACTIONS (1)
  - Death [Fatal]
